FAERS Safety Report 23332174 (Version 1)
Quarter: 2023Q4

REPORT INFORMATION
  Report Type: Spontaneous
  Country: US (occurrence: US)
  Receive Date: 20231222
  Receipt Date: 20231222
  Transmission Date: 20240109
  Serious: No
  Sender: FDA-Public Use
  Company Number: US-PFIZER INC-202300444214

PATIENT
  Age: 69 Year
  Sex: Male
  Weight: 65.77 kg

DRUGS (4)
  1. PAXLOVID [Suspect]
     Active Substance: NIRMATRELVIR\RITONAVIR
     Indication: COVID-19
     Dosage: [NIRMATRELVIR 300 MG]/[RITONAVIR 100 MG]; 2X/DAY
     Dates: start: 20231211
  2. METOPROLOL [Concomitant]
     Active Substance: METOPROLOL
     Indication: Atrial fibrillation
     Dosage: 25MG TABLET, MAKE IT IN HALF, TAKE ONE IN THE MORNING AND ONE AT NIGHT
  3. ROSUVASTATIN [Concomitant]
     Active Substance: ROSUVASTATIN
     Indication: Blood cholesterol
     Dosage: 5 MG, 1X/DAY
     Dates: end: 20231210
  4. AMLODIPINE [Concomitant]
     Active Substance: AMLODIPINE BESYLATE
     Dosage: 2.5 MG, 1X/DAY
     Dates: end: 20231210

REACTIONS (5)
  - Dry mouth [Not Recovered/Not Resolved]
  - Product taste abnormal [Unknown]
  - Taste disorder [Unknown]
  - Headache [Unknown]
  - Nasal congestion [Unknown]
